FAERS Safety Report 5042606-5 (Version None)
Quarter: 2006Q2

REPORT INFORMATION
  Report Type: 
  Country: None (occurrence: None)
  Receive Date: 20060627
  Receipt Date: 20060609
  Transmission Date: 20061013
  Serious: Yes (Other)
  Sender: FDA-Public Use
  Company Number: 2006078235

PATIENT
  Age: 66 Year
  Sex: Male

DRUGS (3)
  1. DILANTIN [Suspect]
     Dosage: 300 MG (300 MG, 1 IN 1 D)
  2. MYSOLINE [Concomitant]
  3. RABEPRAZOLE SODIUM [Concomitant]

REACTIONS (1)
  - LIVER FUNCTION TEST ABNORMAL [None]
